FAERS Safety Report 4667904-6 (Version None)
Quarter: 2005Q2

REPORT INFORMATION
  Report Type: 
  Country: None (occurrence: None)
  Receive Date: 20050520
  Receipt Date: 20050520
  Transmission Date: 20051028
  Serious: No
  Sender: FDA-Public Use
  Company Number: None

PATIENT
  Sex: Female
  Weight: 92 kg

DRUGS (9)
  1. ALL-TRANS RETINOIC ACID [Suspect]
     Indication: ACUTE PROMYELOCYTIC LEUKAEMIA
     Dosage: SEE IMAGE
     Route: 048
     Dates: start: 20040930
  2. DAUNOMYCIN [Suspect]
     Dosage: 50 MG/M2 IV BOLUS OVER 5-10 MIN QD ON DAYS 3-6. NOTE: FOR 3-14 YRS - IV BOLUS OVER 15-30 MIN, FOR {
     Route: 042
  3. CYTARABINE [Suspect]
     Dosage: SEE IMAGE
     Route: 042
  4. ARTHROTEC [Concomitant]
  5. GAGAPENTIN [Concomitant]
  6. LORAZEPAM [Concomitant]
  7. ZANTAC [Concomitant]
  8. ATRA [Concomitant]
  9. NORTRIPTYLINE [Concomitant]

REACTIONS (1)
  - NO ADVERSE EFFECT [None]
